FAERS Safety Report 7311203-0 (Version None)
Quarter: 2011Q1

REPORT INFORMATION
  Report Type: 
  Country: None (occurrence: None)
  Receive Date: 20110224
  Receipt Date: 20101221
  Transmission Date: 20110831
  Serious: No
  Sender: FDA-Public Use
  Company Number: US-BAYER-2010-008873

PATIENT
  Sex: Female

DRUGS (2)
  1. MIRENA [Suspect]
     Indication: PRODUCT USED FOR UNKNOWN INDICATION
     Dosage: 20 MCG/24HR, UNK
     Route: 015
  2. PHENTERMINE [Concomitant]
     Indication: WEIGHT DECREASED
     Dosage: UNK

REACTIONS (4)
  - AFFECT LABILITY [None]
  - TENSION [None]
  - FEELING ABNORMAL [None]
  - NIPPLE PAIN [None]
